FAERS Safety Report 4472168-2 (Version None)
Quarter: 2004Q4

REPORT INFORMATION
  Report Type: 
  Country: None (occurrence: None)
  Receive Date: 20041012
  Receipt Date: 20041001
  Transmission Date: 20050328
  Serious: Yes (Hospitalization)
  Sender: FDA-Public Use
  Company Number: NL-MERCK-0410NLD00004B1

PATIENT
  Sex: Male
  Weight: 3 kg

DRUGS (6)
  1. DECADRON [Suspect]
     Indication: PROPHYLAXIS
  2. DECADRON [Suspect]
  3. DECADRON [Suspect]
  4. DECADRON [Suspect]
  5. DECADRON [Suspect]
  6. DECADRON [Suspect]

REACTIONS (6)
  - ATRIOVENTRICULAR BLOCK COMPLETE [None]
  - DISTURBANCE IN ATTENTION [None]
  - FOETAL GROWTH RETARDATION [None]
  - HYPOGLYCAEMIA [None]
  - LEARNING DISABILITY [None]
  - MOTOR DYSFUNCTION [None]
